FAERS Safety Report 25512895 (Version 1)
Quarter: 2025Q3

REPORT INFORMATION
  Report Type: Spontaneous
  Country: US (occurrence: US)
  Receive Date: 20250703
  Receipt Date: 20250703
  Transmission Date: 20251021
  Serious: Yes (Other)
  Sender: AMGEN
  Company Number: US-AMGEN-USASP2025127103

PATIENT
  Age: 8 Year

DRUGS (3)
  1. RITUXIMAB [Suspect]
     Active Substance: RITUXIMAB
     Indication: Chronic graft versus host disease
     Route: 065
  2. CYCLOPHOSPHAMIDE [Concomitant]
     Active Substance: CYCLOPHOSPHAMIDE
     Indication: B precursor type acute leukaemia
  3. SIROLIMUS [Concomitant]
     Active Substance: SIROLIMUS
     Indication: Chronic graft versus host disease

REACTIONS (3)
  - B-cell type acute leukaemia [Unknown]
  - Drug effective for unapproved indication [Unknown]
  - Off label use [Unknown]
